FAERS Safety Report 5232439-9 (Version None)
Quarter: 2007Q1

REPORT INFORMATION
  Report Type: 
  Country: None (occurrence: None)
  Receive Date: 20070205
  Receipt Date: 20070130
  Transmission Date: 20070707
  Serious: Yes (Hospitalization)
  Sender: FDA-Public Use
  Company Number: 2006SP008995

PATIENT
  Age: 45 Year
  Sex: Male
  Weight: 71 kg

DRUGS (8)
  1. VIRAFERONPEG [Suspect]
     Indication: HEPATITIS C
     Dosage: 40 MCG; QW; SC
     Route: 058
     Dates: start: 20060924
  2. REBETOL [Suspect]
     Indication: HEPATITIS C
     Dosage: 200 MG; QD; PO
     Route: 048
     Dates: start: 20061012
  3. COMBIVIR [Suspect]
     Indication: URTICARIA
     Dosage: 2 DF; QD; PO
     Route: 048
     Dates: start: 19970101, end: 20061127
  4. PAROXETINE HCL [Concomitant]
  5. EPOGEN [Concomitant]
  6. VIRACEPT [Concomitant]
  7. APROVEL [Concomitant]
  8. CORGARD [Concomitant]

REACTIONS (7)
  - ANAEMIA [None]
  - EPISTAXIS [None]
  - INFECTION [None]
  - INTRACRANIAL ANEURYSM [None]
  - LEUKOPENIA [None]
  - PANCYTOPENIA [None]
  - THROMBOCYTOPENIA [None]
